FAERS Safety Report 8439465-7 (Version None)
Quarter: 2012Q2

REPORT INFORMATION
  Report Type: 
  Country: None (occurrence: None)
  Receive Date: 20120615
  Receipt Date: 20120607
  Transmission Date: 20120825
  Serious: Yes (Death)
  Sender: FDA-Public Use
  Company Number: BE-JNJFOC-20120508737

PATIENT
  Sex: Male

DRUGS (5)
  1. CEDOCARD [Concomitant]
  2. XARELTO [Suspect]
     Indication: ATRIAL FIBRILLATION
     Route: 065
     Dates: start: 20120330, end: 20120401
  3. XARELTO [Suspect]
     Indication: CEREBROVASCULAR ACCIDENT PROPHYLAXIS
     Route: 065
     Dates: start: 20120330, end: 20120401
  4. ALDACTONE [Concomitant]
  5. LASIX [Concomitant]

REACTIONS (1)
  - CARDIAC FAILURE [None]
